FAERS Safety Report 8932008 (Version 7)
Quarter: 2015Q1

REPORT INFORMATION
  Report Type: Spontaneous
  Country: US (occurrence: US)
  Receive Date: 20121128
  Receipt Date: 20150309
  Transmission Date: 20150721
  Serious: Yes (Other)
  Sender: FDA-Public Use
  Company Number: US-PFIZER INC-2012292728

PATIENT
  Age: 76 Year
  Sex: Female
  Weight: 90.7 kg

DRUGS (12)
  1. PREMARIN [Suspect]
     Active Substance: ESTROGENS, CONJUGATED
     Indication: BREAST INFLAMMATION
     Dosage: 1 DF, UNK
  2. XALATAN [Suspect]
     Active Substance: LATANOPROST
     Dosage: ONE DROP IN EACH EYE DAILY
  3. CELEBREX [Suspect]
     Active Substance: CELECOXIB
     Indication: OSTEOARTHRITIS
  4. PREMARIN [Suspect]
     Active Substance: ESTROGENS, CONJUGATED
     Indication: CONNECTIVE TISSUE DISORDER
     Dosage: 0.625 MG EVERY OTHER DAY
     Route: 048
  5. CALAN SR [Suspect]
     Active Substance: VERAPAMIL HYDROCHLORIDE
     Indication: HYPERTENSION
     Dosage: 240 MG, DAILY
     Route: 048
  6. LIPITOR [Suspect]
     Active Substance: ATORVASTATIN CALCIUM
     Indication: ARTERIOSCLEROSIS
     Dosage: 1 DF, 1X/DAY
     Dates: start: 2012
  7. XALATAN [Suspect]
     Active Substance: LATANOPROST
     Indication: GLAUCOMA
     Dosage: ONE DROP IN EACH EYE DAILY AT NIGHT, 2.5ML
     Route: 047
  8. XALATAN [Suspect]
     Active Substance: LATANOPROST
     Dosage: ONE DROP IN EACH EYE DAILY
  9. DIOVAN [Concomitant]
     Active Substance: VALSARTAN
     Dosage: 320 MG, DAILY
     Dates: start: 2011
  10. CELEBREX [Suspect]
     Active Substance: CELECOXIB
     Indication: PAIN
     Dosage: 200 MG, DAILY
  11. XALATAN [Suspect]
     Active Substance: LATANOPROST
     Dosage: 2.5 ML, UNK
  12. DIOVAN [Concomitant]
     Active Substance: VALSARTAN
     Indication: HYPERTENSION
     Dosage: 320 MG, DAILY
     Dates: start: 2011

REACTIONS (11)
  - Pulmonary oedema [Recovered/Resolved]
  - Arrhythmia [Recovered/Resolved]
  - Feeling abnormal [Recovered/Resolved]
  - Hearing impaired [Not Recovered/Not Resolved]
  - Peripheral swelling [Recovered/Resolved]
  - Blood pressure increased [Unknown]
  - Ear infection [Recovered/Resolved]
  - Nervousness [Unknown]
  - Lung infection [Recovered/Resolved]
  - Ear pain [Recovered/Resolved]
  - Ear congestion [Recovered/Resolved]

NARRATIVE: CASE EVENT DATE: 20121119
